FAERS Safety Report 10743849 (Version 1)
Quarter: 2015Q1

REPORT INFORMATION
  Report Type: Spontaneous
  Country: US (occurrence: US)
  Receive Date: 20150128
  Receipt Date: 20150128
  Transmission Date: 20150721
  Serious: Yes (Hospitalization, Other)
  Sender: FDA-Public Use
  Company Number: US-ASTRAZENECA-2015SE06485

PATIENT
  Age: 51 Year
  Sex: Female
  Weight: 83.5 kg

DRUGS (7)
  1. BRILINTA [Suspect]
     Active Substance: TICAGRELOR
     Indication: ACUTE CORONARY SYNDROME
     Route: 048
     Dates: start: 20150109
  2. ASPIRIN. [Concomitant]
     Active Substance: ASPIRIN
  3. CRESTOR [Suspect]
     Active Substance: ROSUVASTATIN CALCIUM
     Route: 048
  4. PLAVIX [Suspect]
     Active Substance: CLOPIDOGREL BISULFATE
     Route: 065
  5. METOPROLOL [Suspect]
     Active Substance: METOPROLOL
     Route: 048
  6. AMIODORONE [Concomitant]
     Active Substance: AMIODARONE
  7. LISINOPRIL. [Suspect]
     Active Substance: LISINOPRIL
     Route: 048

REACTIONS (3)
  - Acute coronary syndrome [Unknown]
  - Coronary artery reocclusion [Unknown]
  - Intentional product misuse [Unknown]

NARRATIVE: CASE EVENT DATE: 201501
